FAERS Safety Report 7472025-3 (Version None)
Quarter: 2011Q2

REPORT INFORMATION
  Report Type: 
  Country: None (occurrence: None)
  Receive Date: 20110511
  Receipt Date: 20101008
  Transmission Date: 20111010
  Serious: No
  Sender: FDA-Public Use
  Company Number: A0885662A

PATIENT
  Age: 64 Year
  Sex: Female

DRUGS (2)
  1. RADIATION TREATMENT [Concomitant]
  2. TYKERB [Suspect]
     Indication: BREAST CANCER
     Dosage: 1000MG PER DAY
     Route: 048
     Dates: start: 20100901

REACTIONS (4)
  - HUNGER [None]
  - DYSPHAGIA [None]
  - FATIGUE [None]
  - DIARRHOEA [None]
